FAERS Safety Report 17643681 (Version 3)
Quarter: 2021Q1

REPORT INFORMATION
  Report Type: Spontaneous
  Country: ES (occurrence: ES)
  Receive Date: 20200408
  Receipt Date: 20210329
  Transmission Date: 20210419
  Serious: Yes (Other)
  Sender: FDA-Public Use
  Company Number: ES-AUROBINDO-AUR-APL-2020-016895

PATIENT
  Age: 43 Year
  Sex: Male

DRUGS (2)
  1. DUTASTERIDE SOFT CAPSULES [Suspect]
     Active Substance: DUTASTERIDE
     Indication: ANDROGENETIC ALOPECIA
     Dosage: 0.5 MILLIGRAM
     Route: 048
  2. DUTASTERIDE SOFT CAPSULES [Suspect]
     Active Substance: DUTASTERIDE
     Dosage: 2.5 MILLIGRAM, EVERY WEEK
     Route: 048

REACTIONS (2)
  - Off label use [Recovered/Resolved]
  - Erectile dysfunction [Recovered/Resolved]
